FAERS Safety Report 10014512 (Version 2)
Quarter: 2014Q1

REPORT INFORMATION
  Report Type: Spontaneous
  Country: US (occurrence: US)
  Receive Date: 20140317
  Receipt Date: 20140326
  Transmission Date: 20141002
  Serious: Yes (Other)
  Sender: FDA-Public Use
  Company Number: US-JNJFOC-20140306627

PATIENT
  Age: 67 Year
  Sex: Female

DRUGS (1)
  1. RIVAROXABAN [Suspect]
     Indication: DEEP VEIN THROMBOSIS
     Route: 048

REACTIONS (5)
  - Deep vein thrombosis [Unknown]
  - Gangrene [Unknown]
  - Renal impairment [Unknown]
  - Thrombocytopenia [Unknown]
  - Drug ineffective [Unknown]
